FAERS Safety Report 6698424-5 (Version None)
Quarter: 2010Q2

REPORT INFORMATION
  Report Type: 
  Country: None (occurrence: None)
  Receive Date: 20100427
  Receipt Date: 20100416
  Transmission Date: 20101027
  Serious: Yes (Life-Threatening, Hospitalization)
  Sender: FDA-Public Use
  Company Number: US-JNJFOC-20091207290

PATIENT
  Sex: Male
  Weight: 91.63 kg

DRUGS (33)
  1. REMICADE [Suspect]
     Indication: PSORIATIC ARTHROPATHY
     Route: 042
  2. REMICADE [Suspect]
     Route: 042
  3. REMICADE [Suspect]
     Route: 042
  4. REMICADE [Suspect]
     Route: 042
  5. METHOTREXATE [Suspect]
     Indication: DRUG USE FOR UNKNOWN INDICATION
     Dosage: 1 TABLET DAILY MON-FRI
  6. INHALER ALBUTEROL [Concomitant]
     Route: 045
  7. ASPIRIN [Concomitant]
  8. COLACE [Concomitant]
  9. OXYGEN [Concomitant]
  10. TYLENOL (CAPLET) [Concomitant]
  11. CETIRIZINE W/PSEUDOEPHEDRINE [Concomitant]
  12. BENZONATATE [Concomitant]
  13. GUAIFENESIN [Concomitant]
     Indication: SECRETION DISCHARGE
  14. PAROXETINE HCL [Concomitant]
  15. SIMVASTATIN [Concomitant]
  16. FLOMAX [Concomitant]
  17. SPIRIVA [Concomitant]
     Dosage: 1 CAPSULE 2 INHALATIONS DAILY
     Route: 055
  18. UNIPHYL [Concomitant]
  19. ADVAIR DISKUS 100/50 [Concomitant]
     Dosage: 1 INHALATION TWICE DAILY
     Route: 055
  20. GLUCOPHAGE [Concomitant]
  21. ACETAMINOPHEN AND HYDROCODONE BITARTRATE [Concomitant]
     Dosage: 1 TABLET EVERY 4 HOURS AS NEEDED
  22. CLONAZEPAM [Concomitant]
  23. ALBUTEROL [Concomitant]
  24. ALBUTEROL [Concomitant]
  25. METOPROLOL SUCCINATE [Concomitant]
  26. TRIAMCINOLONE ACETONIDE [Concomitant]
     Dosage: 2-3 TIMES DAILY TO AFFECTED AREA
  27. HYDROCODONE/HOMATROPINE [Concomitant]
     Dosage: 1 TEASPOONE EVERY 4 HOURS
  28. HEMOCYTE PLUS [Concomitant]
     Indication: ANAEMIA
  29. VIGAMOX [Concomitant]
  30. PRILOSEC [Concomitant]
  31. DICLOFENAC SODIUM [Concomitant]
  32. METOPROLOL TARTRATE [Concomitant]
  33. AVAPRO [Concomitant]

REACTIONS (7)
  - BRONCHITIS [None]
  - CHRONIC OBSTRUCTIVE PULMONARY DISEASE [None]
  - KIDNEY INFECTION [None]
  - NEUTROPENIA [None]
  - PNEUMOCOCCAL SEPSIS [None]
  - PNEUMONIA [None]
  - RENAL FAILURE CHRONIC [None]
